FAERS Safety Report 5708999-8 (Version None)
Quarter: 2008Q2

REPORT INFORMATION
  Report Type: 
  Country: None (occurrence: None)
  Receive Date: 20080416
  Receipt Date: 20080416
  Transmission Date: 20081010
  Serious: Yes (Hospitalization)
  Sender: FDA-Public Use
  Company Number: None

PATIENT
  Age: 82 Year
  Sex: Female
  Weight: 89 kg

DRUGS (6)
  1. WARFARIN SODIUM [Suspect]
     Indication: ATRIAL FIBRILLATION
     Dosage: DAILY PO CHRONIC
     Route: 048
  2. AMIODARONE HCL [Suspect]
     Indication: ATRIAL FIBRILLATION
     Dosage: PO CHRONIC
     Route: 048
  3. ZOLOFT [Concomitant]
  4. PRAVADIOL [Concomitant]
  5. LASIX [Concomitant]
  6. ATIVAN [Concomitant]

REACTIONS (4)
  - ANAEMIA [None]
  - FALL [None]
  - HAEMATOMA [None]
  - HYPOTENSION [None]
